FAERS Safety Report 16939272 (Version 3)
Quarter: 2019Q4

REPORT INFORMATION
  Report Type: Report from Study
  Country: US (occurrence: US)
  Receive Date: 20191021
  Receipt Date: 20191129
  Transmission Date: 20200122
  Serious: Yes (Hospitalization, Disabling, Other)
  Sender: FDA-Public Use
  Company Number: US-EMD SERONO-9122708

PATIENT
  Sex: Female

DRUGS (1)
  1. REBIF [Suspect]
     Active Substance: INTERFERON BETA-1A
     Indication: MULTIPLE SCLEROSIS
     Route: 058
     Dates: start: 20000210, end: 2019

REACTIONS (13)
  - Eyelid thickening [Unknown]
  - Rash [Not Recovered/Not Resolved]
  - Multiple sclerosis relapse [Recovering/Resolving]
  - Swollen tongue [Unknown]
  - Cardiac pacemaker insertion [Unknown]
  - Colon cancer [Unknown]
  - Anxiety [Unknown]
  - Constipation [Unknown]
  - Stress [Unknown]
  - Heart rate abnormal [Unknown]
  - Large intestine polyp [Unknown]
  - Medical device site haemorrhage [Unknown]
  - Swelling face [Unknown]

NARRATIVE: CASE EVENT DATE: 2016
